FAERS Safety Report 6196667-0 (Version None)
Quarter: 2009Q2

REPORT INFORMATION
  Report Type: 
  Country: None (occurrence: None)
  Receive Date: 20090520
  Receipt Date: 20090514
  Transmission Date: 20091009
  Serious: Yes (Hospitalization)
  Sender: FDA-Public Use
  Company Number: B0573964A

PATIENT
  Age: 80 Year
  Sex: Female

DRUGS (17)
  1. DEROXAT [Suspect]
     Indication: DRUG USE FOR UNKNOWN INDICATION
     Dosage: 40MG PER DAY
     Route: 048
     Dates: start: 20080916
  2. NOVOMIX [Suspect]
     Dosage: 28IU PER DAY
     Route: 058
  3. TAHOR [Suspect]
     Indication: DRUG USE FOR UNKNOWN INDICATION
     Dosage: 10MG TWICE PER DAY
     Route: 048
  4. NEBIVOLOL [Concomitant]
     Dosage: 10MG PER DAY
     Route: 048
  5. KARDEGIC [Concomitant]
     Route: 065
  6. LOXEN LP [Concomitant]
     Dosage: 100MG PER DAY
     Route: 048
  7. NITRODERM [Concomitant]
     Route: 065
  8. CAPTOPRIL [Concomitant]
     Route: 065
  9. LEVOTHYROX [Concomitant]
     Route: 065
  10. SPECIAFOLDINE [Concomitant]
     Route: 065
  11. LORAZEPAM [Concomitant]
     Route: 065
  12. CACIT [Concomitant]
     Route: 065
  13. TROSPIUM CHLORIDE [Concomitant]
     Route: 065
  14. PROTELOS [Concomitant]
     Route: 065
  15. FORLAX [Concomitant]
     Route: 065
  16. TRAMADOL HCL [Concomitant]
     Route: 065
  17. NEXIUM [Concomitant]
     Route: 065

REACTIONS (3)
  - HYPOGLYCAEMIA [None]
  - HYPOTHERMIA [None]
  - ORTHOSTATIC HYPOTENSION [None]
